FAERS Safety Report 8544071-X (Version None)
Quarter: 2012Q3

REPORT INFORMATION
  Report Type: 
  Country: None (occurrence: None)
  Receive Date: 20120727
  Receipt Date: 20120712
  Transmission Date: 20120928
  Serious: Yes (Life-Threatening, Hospitalization)
  Sender: FDA-Public Use
  Company Number: TH-INCYTE CORPORATION-2012IN001075

PATIENT
  Sex: Female
  Weight: 47.2 kg

DRUGS (5)
  1. INC424 [Suspect]
     Indication: MYELOFIBROSIS
     Dosage: 30 MG, BID
     Route: 048
     Dates: start: 20120322
  2. BLOOD TRANSFUSION, AUXILIARY PRODUCTS [Concomitant]
  3. HYDRALAZINE HCL [Concomitant]
  4. PROPRANOLOL [Concomitant]
  5. COLCHICINE [Concomitant]

REACTIONS (2)
  - PULMONARY CONGESTION [None]
  - CARDIAC FAILURE ACUTE [None]
